FAERS Safety Report 4683245-5 (Version None)
Quarter: 2005Q2

REPORT INFORMATION
  Report Type: 
  Country: None (occurrence: None)
  Receive Date: 20050602
  Receipt Date: 20050202
  Transmission Date: 20051028
  Serious: No
  Sender: FDA-Public Use
  Company Number: USA050289794

PATIENT
  Age: 76 Year
  Sex: Female
  Weight: 105 kg

DRUGS (7)
  1. CYMBALTA [Suspect]
     Indication: DIABETIC NEUROPATHY
     Dosage: 60 MG DAY
  2. METFORMIN W/ROSIGLITAZONE [Concomitant]
  3. LIPITOR [Concomitant]
  4. SYNTHROID [Concomitant]
  5. ALPROSTADIL [Concomitant]
  6. ASPIRIN [Concomitant]
  7. CALCIUM AND VITAMIN D [Concomitant]

REACTIONS (2)
  - NEUROPATHY PERIPHERAL [None]
  - SLEEP DISORDER [None]
